FAERS Safety Report 4985008-X (Version None)
Quarter: 2006Q1

REPORT INFORMATION
  Report Type: 
  Country: None (occurrence: None)
  Receive Date: 20060309
  Receipt Date: 20050808
  Transmission Date: 20060701
  Serious: Yes (Other)
  Sender: FDA-Public Use
  Company Number: 413695

PATIENT
  Sex: 0

DRUGS (2)
  1. ISOTRETINOIN [Suspect]
     Indication: STAPHYLOCOCCAL INFECTION
     Dates: start: 20041210, end: 20050305
  2. DIANE 35 (CYPROTERONE ACETATE/ETHINYL ESTRADIOL) [Concomitant]

REACTIONS (1)
  - PREGNANCY [None]
